FAERS Safety Report 8950210 (Version 1)
Quarter: 2012Q4

REPORT INFORMATION
  Report Type: 
  Country: US (occurrence: US)
  Receive Date: 20121205
  Receipt Date: 20121205
  Transmission Date: 20130627
  Serious: No
  Sender: FDA-Public Use
  Company Number: US-ASTELLAS-2011US007764

PATIENT
  Sex: Male

DRUGS (3)
  1. TARCEVA [Suspect]
     Indication: NASAL SINUS CANCER
     Dosage: 150 mg, UID/QD
     Route: 048
     Dates: start: 20110811
  2. TARCEVA [Suspect]
     Dosage: UNK
     Route: 048
  3. TARCEVA [Suspect]
     Dosage: 100 mg, UID/QD
     Route: 048
     Dates: start: 201110

REACTIONS (5)
  - Off label use [Unknown]
  - Skin haemorrhage [Recovering/Resolving]
  - Seborrhoea [Unknown]
  - Skin reaction [Recovering/Resolving]
  - Rash [Not Recovered/Not Resolved]
